FAERS Safety Report 20141152 (Version 1)
Quarter: 2021Q4

REPORT INFORMATION
  Report Type: Spontaneous
  Country: DE (occurrence: DE)
  Receive Date: 20211202
  Receipt Date: 20211202
  Transmission Date: 20220303
  Serious: Yes (Disabling, Other)
  Sender: FDA-Public Use
  Company Number: DE-002147023-NVSC2021DE227143

PATIENT
  Age: 53 Year
  Sex: Male

DRUGS (1)
  1. FORMOTEROL [Suspect]
     Active Substance: FORMOTEROL
     Indication: Sarcoidosis
     Dosage: UNK UNK, QD (BID)
     Route: 065

REACTIONS (17)
  - Pulmonary function test decreased [Unknown]
  - Gait disturbance [Unknown]
  - Cor pulmonale [Unknown]
  - Paralysis [Unknown]
  - Sarcoidosis [Unknown]
  - Pericarditis constrictive [Unknown]
  - Neuralgia [Unknown]
  - Polyarthritis [Unknown]
  - Pulmonary oedema [Unknown]
  - Cutaneous sarcoidosis [Unknown]
  - Dyspnoea [Unknown]
  - Atrial fibrillation [Unknown]
  - Angina pectoris [Recovered/Resolved]
  - Aortic valve calcification [Unknown]
  - Abdominal distension [Unknown]
  - Product use in unapproved indication [Unknown]
  - Off label use [Unknown]
